FAERS Safety Report 7214914-0 (Version None)
Quarter: 2011Q1

REPORT INFORMATION
  Report Type: 
  Country: None (occurrence: None)
  Receive Date: 20110107
  Receipt Date: 20100511
  Transmission Date: 20110831
  Serious: No
  Sender: FDA-Public Use
  Company Number: A0859132A

PATIENT
  Sex: Female

DRUGS (1)
  1. LOVAZA [Suspect]
     Dosage: 2CAPL TWICE PER DAY
     Route: 048
     Dates: start: 20070101

REACTIONS (1)
  - ERUCTATION [None]
